FAERS Safety Report 24058131 (Version 2)
Quarter: 2024Q3

REPORT INFORMATION
  Report Type: Spontaneous
  Country: US (occurrence: US)
  Receive Date: 20240707
  Receipt Date: 20240719
  Transmission Date: 20241016
  Serious: No
  Sender: MERCK
  Company Number: US-009507513-2406USA003840

PATIENT
  Age: 18 Year
  Sex: Male

DRUGS (7)
  1. NOXAFIL [Suspect]
     Active Substance: POSACONAZOLE
     Indication: Sinusitis
     Dosage: FOR 5 MONTHS
     Route: 048
  2. NOXAFIL [Suspect]
     Active Substance: POSACONAZOLE
     Indication: Alternaria infection
     Dosage: 300 MILLIGRAM, BID
     Route: 048
  3. NOXAFIL [Suspect]
     Active Substance: POSACONAZOLE
     Indication: Fungal infection
  4. NOXAFIL [Suspect]
     Active Substance: POSACONAZOLE
     Indication: Prophylaxis
  5. AMPHOTERICIN B [Concomitant]
     Active Substance: AMPHOTERICIN B
     Indication: Sinusitis
  6. AMPHOTERICIN B [Concomitant]
     Active Substance: AMPHOTERICIN B
     Indication: Alternaria infection
  7. AMPHOTERICIN B [Concomitant]
     Active Substance: AMPHOTERICIN B
     Indication: Fungal infection

REACTIONS (2)
  - Off label use [Unknown]
  - Inappropriate schedule of product administration [Unknown]
